FAERS Safety Report 14826401 (Version 1)
Quarter: 2018Q2

REPORT INFORMATION
  Report Type: Spontaneous
  Country: SK (occurrence: SK)
  Receive Date: 20180430
  Receipt Date: 20180430
  Transmission Date: 20180711
  Serious: Yes (Other)
  Sender: FDA-Public Use
  Company Number: SK-PFIZER INC-2018173371

PATIENT
  Age: 74 Year
  Sex: Male

DRUGS (2)
  1. CORDARONE [Suspect]
     Active Substance: AMIODARONE HYDROCHLORIDE
     Indication: ATRIAL FIBRILLATION
  2. CORDARONE [Suspect]
     Active Substance: AMIODARONE HYDROCHLORIDE
     Indication: ATRIAL FLUTTER
     Dosage: 200 MG, DAILY
     Route: 048
     Dates: start: 201708

REACTIONS (3)
  - Goitre [Not Recovered/Not Resolved]
  - Sense of oppression [Not Recovered/Not Resolved]
  - Hyperthyroidism [Not Recovered/Not Resolved]
